FAERS Safety Report 21853218 (Version 3)
Quarter: 2023Q1

REPORT INFORMATION
  Report Type: Report from Study
  Country: FR (occurrence: FR)
  Receive Date: 20230112
  Receipt Date: 20230126
  Transmission Date: 20230417
  Serious: Yes (Hospitalization, Other)
  Sender: FDA-Public Use
  Company Number: FR-ASTELLAS-2023US001020

PATIENT
  Age: 70 Year
  Sex: Male

DRUGS (3)
  1. ENFORTUMAB VEDOTIN [Suspect]
     Active Substance: ENFORTUMAB VEDOTIN
     Indication: Transitional cell carcinoma
     Dosage: 100 MG, CYCLIC (ONCE A WEEK THEN ONCE/2 WEEKS)
     Route: 042
     Dates: start: 20211117, end: 20211201
  2. ENFORTUMAB VEDOTIN [Suspect]
     Active Substance: ENFORTUMAB VEDOTIN
     Dosage: 100 MG, CYCLIC (ONCE A WEEK THEN ONCE/2 WEEKS)
     Route: 042
     Dates: start: 20220120
  3. ENFORTUMAB VEDOTIN [Suspect]
     Active Substance: ENFORTUMAB VEDOTIN
     Dosage: UNK UNK, OTHER (ONCE EVERY 2)(DOSE REDUCED)
     Route: 042

REACTIONS (4)
  - Hepatic cytolysis [Recovered/Resolved]
  - Neuropathy peripheral [Recovered/Resolved]
  - Candida infection [Recovered/Resolved]
  - Septic shock [Recovered/Resolved]

NARRATIVE: CASE EVENT DATE: 20211201
